FAERS Safety Report 8883111 (Version 1)
Quarter: 2012Q4

REPORT INFORMATION
  Report Type: 
  Country: US (occurrence: US)
  Receive Date: 20121102
  Receipt Date: 20121102
  Transmission Date: 20130627
  Serious: No
  Sender: FDA-Public Use
  Company Number: US-ABBOTT-12P-163-0945293-00

PATIENT
  Age: 41 Year
  Sex: Female

DRUGS (2)
  1. BIAXIN [Suspect]
     Indication: LYME DISEASE
     Dosage: For 21 days
     Dates: start: 20120611
  2. METRONIDAZOLE [Concomitant]
     Indication: LYME DISEASE
     Dates: start: 2010

REACTIONS (2)
  - Nausea [Not Recovered/Not Resolved]
  - Off label use [None]
